FAERS Safety Report 9125338 (Version 1)
Quarter: 2013Q1

REPORT INFORMATION
  Report Type: Spontaneous
  Country: US (occurrence: US)
  Receive Date: 20130227
  Receipt Date: 20130227
  Transmission Date: 20140127
  Serious: No
  Sender: FDA-Public Use
  Company Number: US-B.I. PHARMACEUTICALS,INC./RIDGEFIELD-2013-BI-04522BP

PATIENT
  Age: 49 Year
  Sex: Male

DRUGS (6)
  1. JENTADUETO [Suspect]
     Indication: TYPE 2 DIABETES MELLITUS
     Route: 048
     Dates: start: 2013, end: 2013
  2. DEPAKOTE [Concomitant]
  3. VIIBRYD [Concomitant]
  4. NEXIUM [Concomitant]
  5. TESTOSTERONE [Concomitant]
     Route: 030
  6. ADDERALL [Concomitant]

REACTIONS (1)
  - Vision blurred [Recovered/Resolved]
